FAERS Safety Report 7855608-8 (Version None)
Quarter: 2011Q4

REPORT INFORMATION
  Report Type: 
  Country: None (occurrence: None)
  Receive Date: 20111026
  Receipt Date: 20111012
  Transmission Date: 20120403
  Serious: Yes (Hospitalization)
  Sender: FDA-Public Use
  Company Number: US-WATSON-2011-15304

PATIENT
  Sex: Female

DRUGS (13)
  1. LAMOTRIGINE [Suspect]
     Dosage: 50 MG, UNKNOWN
     Route: 065
     Dates: end: 20110822
  2. CELEXA [Concomitant]
     Indication: PRODUCT USED FOR UNKNOWN INDICATION
     Dosage: UNK
     Route: 065
  3. LAMOTRIGINE [Suspect]
     Indication: DEPRESSION
     Dosage: 100 MG, UNKNOWN
     Route: 065
     Dates: start: 20110823, end: 20110825
  4. RAMIPRIL [Concomitant]
     Indication: PRODUCT USED FOR UNKNOWN INDICATION
     Dosage: UNK
     Route: 065
  5. SENNA PLUS                         /00142201/ [Concomitant]
     Indication: PRODUCT USED FOR UNKNOWN INDICATION
     Dosage: UNK
     Route: 065
  6. COLACE [Concomitant]
     Indication: PRODUCT USED FOR UNKNOWN INDICATION
     Dosage: UNK
     Route: 065
  7. SYNTHROID [Concomitant]
     Indication: PRODUCT USED FOR UNKNOWN INDICATION
     Dosage: UNK
     Route: 065
  8. LAMOTRIGINE [Suspect]
     Indication: AFFECTIVE DISORDER
  9. LAMOTRIGINE [Suspect]
  10. LAMOTRIGINE [Suspect]
     Indication: DEPRESSION
     Dosage: 100 MG, QAM
     Route: 048
     Dates: start: 20110826, end: 20110830
  11. LAMOTRIGINE [Suspect]
     Indication: AFFECTIVE DISORDER
  12. COREG [Concomitant]
     Indication: PRODUCT USED FOR UNKNOWN INDICATION
     Dosage: UNK
     Route: 065
  13. COUMADIN [Concomitant]
     Indication: PRODUCT USED FOR UNKNOWN INDICATION
     Dosage: UNK
     Route: 065

REACTIONS (8)
  - TONGUE BLISTERING [None]
  - STEVENS-JOHNSON SYNDROME [None]
  - NERVE INJURY [None]
  - OROPHARYNGEAL BLISTERING [None]
  - DRUG PRESCRIBING ERROR [None]
  - SKIN EXFOLIATION [None]
  - DRUG RASH WITH EOSINOPHILIA AND SYSTEMIC SYMPTOMS [None]
  - BURNING SENSATION [None]
